FAERS Safety Report 12330579 (Version 1)
Quarter: 2016Q2

REPORT INFORMATION
  Report Type: Spontaneous
  Country: NZ (occurrence: NZ)
  Receive Date: 20160504
  Receipt Date: 20160504
  Transmission Date: 20160815
  Serious: Yes (Hospitalization, Other)
  Sender: FDA-Public Use
  Company Number: NZ-ABBVIE-16K-118-1616893-00

PATIENT
  Age: 55 Year

DRUGS (11)
  1. HUMIRA [Suspect]
     Active Substance: ADALIMUMAB
     Indication: LEUKOCYTE ANTIGEN B-27 POSITIVE
  2. METHOTREXATE [Concomitant]
     Active Substance: METHOTREXATE
     Indication: PRODUCT USED FOR UNKNOWN INDICATION
     Dates: end: 2004
  3. HUMIRA [Suspect]
     Active Substance: ADALIMUMAB
     Indication: ANKYLOSING SPONDYLITIS
     Route: 058
     Dates: start: 201308, end: 201603
  4. ALLOPURINOL. [Concomitant]
     Active Substance: ALLOPURINOL
     Indication: PRODUCT USED FOR UNKNOWN INDICATION
     Dates: start: 20000315
  5. PANADOL [Concomitant]
     Active Substance: ACETAMINOPHEN
     Indication: PRODUCT USED FOR UNKNOWN INDICATION
  6. FOLIC ACID. [Concomitant]
     Active Substance: FOLIC ACID
     Indication: PRODUCT USED FOR UNKNOWN INDICATION
  7. METHOTREXATE [Concomitant]
     Active Substance: METHOTREXATE
     Dates: start: 200410, end: 200412
  8. METHOTREXATE [Concomitant]
     Active Substance: METHOTREXATE
     Dates: start: 200707, end: 2009
  9. METHOTREXATE [Concomitant]
     Active Substance: METHOTREXATE
     Dates: start: 201603
  10. FOLIC ACID. [Concomitant]
     Active Substance: FOLIC ACID
     Dates: start: 200410
  11. METHOTREXATE [Concomitant]
     Active Substance: METHOTREXATE
     Dates: start: 200905, end: 2016

REACTIONS (5)
  - Facial paralysis [Unknown]
  - Facial paralysis [Recovered/Resolved]
  - Henoch-Schonlein purpura [Unknown]
  - Malignant melanoma [Unknown]
  - IgA nephropathy [Unknown]

NARRATIVE: CASE EVENT DATE: 201505
